FAERS Safety Report 6533924-X (Version None)
Quarter: 2010Q1

REPORT INFORMATION
  Report Type: 
  Country: None (occurrence: None)
  Receive Date: 20100111
  Receipt Date: 20091228
  Transmission Date: 20100710
  Serious: Yes (Other)
  Sender: FDA-Public Use
  Company Number: BR-MYLANLABS-2009S1021964

PATIENT
  Age: 21 Year
  Sex: Male

DRUGS (2)
  1. NANDROLONE DECANOATE [Suspect]
     Route: 048
  2. FUROSEMIDE [Suspect]
     Indication: DRUG ABUSE

REACTIONS (2)
  - DRUG ABUSE [None]
  - RETINAL VEIN OCCLUSION [None]
